FAERS Safety Report 10542925 (Version 1)
Quarter: 2014Q4

REPORT INFORMATION
  Report Type: Spontaneous
  Country: US (occurrence: None)
  Receive Date: 20141024
  Receipt Date: 20141024
  Transmission Date: 20150529
  Serious: Yes (Other)
  Sender: FDA-Public Use
  Company Number: None

PATIENT
  Sex: Female

DRUGS (1)
  1. SOMBRA WARM THERAPY [Suspect]
     Active Substance: CAMPHOR (SYNTHETIC)\MENTHOL
     Indication: MIGRAINE
     Dosage: APPLIED TO SURFACE, USUALLY THE SKIN
     Route: 061
     Dates: start: 20140731, end: 20141003

REACTIONS (3)
  - Skin exfoliation [None]
  - Burns second degree [None]
  - Product quality issue [None]

NARRATIVE: CASE EVENT DATE: 20141003
